FAERS Safety Report 15316839 (Version 1)
Quarter: 2018Q3

REPORT INFORMATION
  Report Type: Spontaneous
  Country: EG (occurrence: EG)
  Receive Date: 20180824
  Receipt Date: 20180824
  Transmission Date: 20181010
  Serious: Yes (Death, Hospitalization)
  Sender: FDA-Public Use
  Company Number: PHHY2018EG072079

PATIENT
  Sex: Female

DRUGS (3)
  1. VOTRIENT [Suspect]
     Active Substance: PAZOPANIB HYDROCHLORIDE
     Indication: SOFT TISSUE SARCOMA
     Dosage: 600 MG, ONCE A DAY
     Route: 048
     Dates: start: 201306, end: 201803
  2. ENDOXAN [Suspect]
     Active Substance: CYCLOPHOSPHAMIDE
     Indication: PRODUCT USED FOR UNKNOWN INDICATION
     Dosage: UNK
     Route: 065
     Dates: start: 20180725
  3. VOTRIENT [Suspect]
     Active Substance: PAZOPANIB HYDROCHLORIDE
     Dosage: UNK
     Route: 048
     Dates: end: 20180511

REACTIONS (13)
  - Hepatic neoplasm [Fatal]
  - Soft tissue sarcoma [Fatal]
  - Monoplegia [Unknown]
  - Hypertension [Not Recovered/Not Resolved]
  - Brain neoplasm [Fatal]
  - Lung neoplasm [Fatal]
  - Impaired healing [Not Recovered/Not Resolved]
  - Diarrhoea [Not Recovered/Not Resolved]
  - Malignant neoplasm progression [Fatal]
  - Abdominal pain upper [Not Recovered/Not Resolved]
  - Pleural effusion [Unknown]
  - Benign bone neoplasm [Fatal]
  - Drug resistance [Unknown]

NARRATIVE: CASE EVENT DATE: 201308
